FAERS Safety Report 14479460 (Version 1)
Quarter: 2018Q1

REPORT INFORMATION
  Report Type: Spontaneous
  Country: US (occurrence: US)
  Receive Date: 20180202
  Receipt Date: 20180202
  Transmission Date: 20180509
  Serious: No
  Sender: FDA-Public Use
  Company Number: US-SHIRE-US201802945

PATIENT
  Age: 76 Year
  Sex: Female

DRUGS (1)
  1. CINRYZE [Suspect]
     Active Substance: HUMAN C1-ESTERASE INHIBITOR
     Indication: HEREDITARY ANGIOEDEMA
     Dosage: 1500 IU, 2X A WEEK
     Route: 042
     Dates: start: 20100501

REACTIONS (5)
  - Nasopharyngitis [Recovering/Resolving]
  - Hereditary angioedema [Recovered/Resolved]
  - Sinus congestion [Unknown]
  - Prescribed overdose [Unknown]
  - Dizziness [Unknown]

NARRATIVE: CASE EVENT DATE: 20180108
